FAERS Safety Report 10443344 (Version 32)
Quarter: 2015Q4

REPORT INFORMATION
  Report Type: Report from Study
  Country: CA (occurrence: CA)
  Receive Date: 20140910
  Receipt Date: 20151223
  Transmission Date: 20160304
  Serious: Yes (Hospitalization, Other)
  Sender: FDA-Public Use
  Company Number: CA-ROCHE-1113550

PATIENT
  Age: 61 Year
  Sex: Female
  Weight: 94 kg

DRUGS (15)
  1. FLU SHOT (UNKNOWN INGREDIENTS) [Suspect]
     Active Substance: INFLUENZA VIRUS VACCINE
     Indication: PRODUCT USED FOR UNKNOWN INDICATION
     Route: 065
  2. ASPIRIN. [Concomitant]
     Active Substance: ASPIRIN
     Route: 065
  3. ACTEMRA [Suspect]
     Active Substance: TOCILIZUMAB
     Route: 042
     Dates: start: 20131126
  4. ACTEMRA [Suspect]
     Active Substance: TOCILIZUMAB
     Route: 042
     Dates: start: 20150525
  5. BENADRYL [Suspect]
     Active Substance: DIPHENHYDRAMINE HYDROCHLORIDE
     Indication: INFUSION RELATED REACTION
     Route: 042
     Dates: start: 20131028, end: 20131028
  6. CEPHALEX [Concomitant]
     Route: 065
  7. BENADRYL [Suspect]
     Active Substance: DIPHENHYDRAMINE HYDROCHLORIDE
     Indication: PREMEDICATION
     Route: 048
     Dates: start: 20140317
  8. APO-BISOPROLOL [Concomitant]
     Route: 065
  9. HYDROMORPHONE [Concomitant]
     Active Substance: HYDROMORPHONE
  10. FOLIC ACID. [Concomitant]
     Active Substance: FOLIC ACID
  11. ACTEMRA [Suspect]
     Active Substance: TOCILIZUMAB
     Indication: RHEUMATOID ARTHRITIS
     Route: 042
     Dates: start: 20120627
  12. GLYCONON [Concomitant]
     Route: 065
  13. APO-LANSOPRAZOLE [Concomitant]
     Route: 065
  14. APO-LISINOPRIL [Concomitant]
     Route: 065
  15. LIPITOR [Concomitant]
     Active Substance: ATORVASTATIN CALCIUM
     Route: 065

REACTIONS (65)
  - Diverticulitis [Recovered/Resolved]
  - Migraine with aura [Not Recovered/Not Resolved]
  - Weight decreased [Unknown]
  - Wound drainage [Recovering/Resolving]
  - Throat tightness [Recovered/Resolved]
  - Rheumatoid arthritis [Unknown]
  - Bursitis [Not Recovered/Not Resolved]
  - Arthralgia [Not Recovered/Not Resolved]
  - Dry skin [Unknown]
  - Incision site complication [Not Recovered/Not Resolved]
  - Body temperature decreased [Unknown]
  - Fall [Unknown]
  - Haemorrhage [Unknown]
  - Pulmonary fibrosis [Recovered/Resolved]
  - Nasopharyngitis [Not Recovered/Not Resolved]
  - Vomiting [Unknown]
  - Joint lock [Unknown]
  - Kidney infection [Unknown]
  - Hypoaesthesia [Not Recovered/Not Resolved]
  - Nasal ulcer [Recovered/Resolved]
  - Fungal infection [Recovered/Resolved]
  - Abdominal rigidity [Unknown]
  - Cough [Not Recovered/Not Resolved]
  - Bone contusion [Unknown]
  - Contusion [Unknown]
  - Hernia [Not Recovered/Not Resolved]
  - Concussion [Not Recovered/Not Resolved]
  - Arthritis infective [Recovering/Resolving]
  - Infusion related reaction [Unknown]
  - Headache [Unknown]
  - Weight increased [Recovered/Resolved]
  - Urticaria [Recovered/Resolved]
  - Muscle tightness [Recovered/Resolved]
  - Infusion related reaction [Recovered/Resolved]
  - Tooth disorder [Unknown]
  - Hepatic enzyme increased [Recovering/Resolving]
  - Nausea [Unknown]
  - Oxygen saturation decreased [Unknown]
  - Head injury [Unknown]
  - Abdominal hernia [Not Recovered/Not Resolved]
  - Arthralgia [Not Recovered/Not Resolved]
  - Pyrexia [Recovered/Resolved]
  - Oropharyngeal pain [Not Recovered/Not Resolved]
  - Wound [Unknown]
  - Haemorrhagic cyst [Unknown]
  - Back disorder [Unknown]
  - Erythema [Recovered/Resolved]
  - Cartilage injury [Not Recovered/Not Resolved]
  - Fatigue [Recovered/Resolved]
  - Hypotension [Unknown]
  - Infusion related reaction [Unknown]
  - Throat irritation [Recovered/Resolved]
  - Osteoarthritis [Not Recovered/Not Resolved]
  - Haematoma [Recovered/Resolved]
  - Pain in extremity [Not Recovered/Not Resolved]
  - Nasal oedema [Recovered/Resolved]
  - Feeling hot [Recovered/Resolved]
  - Catheter site bruise [Unknown]
  - Cystitis [Not Recovered/Not Resolved]
  - Abdominal pain upper [Recovered/Resolved]
  - Weight increased [Not Recovered/Not Resolved]
  - Gastritis [Unknown]
  - Pain [Unknown]
  - Hypersensitivity [Unknown]
  - Impaired healing [Unknown]

NARRATIVE: CASE EVENT DATE: 20120629
